FAERS Safety Report 5958380-1 (Version None)
Quarter: 2008Q4

REPORT INFORMATION
  Report Type: 
  Country: None (occurrence: None)
  Receive Date: 20081117
  Receipt Date: 20081105
  Transmission Date: 20090506
  Serious: Yes (Other)
  Sender: FDA-Public Use
  Company Number: 2008AL011650

PATIENT
  Sex: Female

DRUGS (1)
  1. DIGOXIN [Suspect]

REACTIONS (1)
  - CARDIAC OPERATION [None]
